FAERS Safety Report 22218620 (Version 1)
Quarter: 2023Q2

REPORT INFORMATION
  Report Type: Spontaneous
  Country: RU (occurrence: RU)
  Receive Date: 20230417
  Receipt Date: 20230417
  Transmission Date: 20230721
  Serious: Yes (Other)
  Sender: FDA-Public Use
  Company Number: RU-SA-2023SA114938

PATIENT
  Age: 69 Year
  Sex: Female
  Weight: 82 kg

DRUGS (9)
  1. SOLIQUA 100/33 [Suspect]
     Active Substance: INSULIN GLARGINE\LIXISENATIDE
     Indication: Type 1 diabetes mellitus
     Dosage: 10 IU, QD
     Route: 058
     Dates: start: 20230123, end: 20230125
  2. GLICLAZIDE [Concomitant]
     Active Substance: GLICLAZIDE
     Dosage: 30 MG
     Route: 048
     Dates: start: 20230116, end: 20230124
  3. METFORMIN [Concomitant]
     Active Substance: METFORMIN HYDROCHLORIDE
     Dosage: 1000 MG
     Route: 048
     Dates: start: 20230116, end: 20230124
  4. LISINOPRIL [Concomitant]
     Active Substance: LISINOPRIL
     Dosage: 5 MG
     Route: 048
     Dates: start: 20230116, end: 20230201
  5. ASPIRIN [Concomitant]
     Active Substance: ASPIRIN
     Dosage: 100 MG
     Route: 048
     Dates: start: 20230116, end: 20230125
  6. ETHYLMETHYLHYDROXYPYRIDINE SUCCINATE [Concomitant]
     Dosage: 5 ML
     Route: 042
     Dates: start: 20230116, end: 20230125
  7. MELDONIUM [Concomitant]
     Active Substance: MELDONIUM
     Dosage: 5 ML
     Route: 041
     Dates: start: 20230116, end: 20230125
  8. PYRIDOXINE [Concomitant]
     Active Substance: PYRIDOXINE
     Dosage: 1 ML
     Route: 030
     Dates: start: 20230116, end: 20230125
  9. CYANOCOBALAMIN [Concomitant]
     Active Substance: CYANOCOBALAMIN
     Dosage: 500 IU, QD
     Route: 030
     Dates: start: 20230116, end: 20230125

REACTIONS (2)
  - Dermatitis allergic [Recovered/Resolved]
  - Product use in unapproved indication [Unknown]

NARRATIVE: CASE EVENT DATE: 20230123
